FAERS Safety Report 6962379-6 (Version None)
Quarter: 2010Q3

REPORT INFORMATION
  Report Type: 
  Country: None (occurrence: None)
  Receive Date: 20100902
  Receipt Date: 20100825
  Transmission Date: 20110219
  Serious: Yes (Hospitalization)
  Sender: FDA-Public Use
  Company Number: DE-TEVA-246782ISR

PATIENT
  Age: 56 Year
  Sex: Female
  Weight: 87 kg

DRUGS (3)
  1. MIRTAZAPINE [Suspect]
     Indication: DEPRESSION
     Route: 048
     Dates: start: 20081201
  2. PRITOR (TELMISARTAN/HCT) [Suspect]
     Indication: HYPERTENSION
     Dosage: UNIT DOSE:80MG TELMISARTAN/12.5MG HCT
     Route: 048
     Dates: start: 20090201, end: 20090320
  3. UNIMAX (FELODIPIN/RAMIPRIL) [Suspect]
     Indication: HYPERTENSION
     Dosage: UNIT DOSE: 5MG FELODIPIN/5MG RAMIPRIL
     Dates: start: 20060101, end: 20090320

REACTIONS (1)
  - HYPONATRAEMIA [None]
